FAERS Safety Report 7426827 (Version 58)
Quarter: 2018Q3

REPORT INFORMATION
  Report Type: Spontaneous
  Country: CA (occurrence: CA)
  Receive Date: 20100621
  Receipt Date: 20180914
  Transmission Date: 20181010
  Serious: Yes (Hospitalization, Other)
  Sender: FDA-Public Use
  Company Number: CA-ROCHE-GNE303057

PATIENT
  Age: 54 Year
  Sex: Female
  Weight: 54 kg

DRUGS (50)
  1. XOLAIR [Suspect]
     Active Substance: OMALIZUMAB
     Indication: ASTHMA
     Route: 058
     Dates: start: 20060612
  2. XOLAIR [Suspect]
     Active Substance: OMALIZUMAB
     Route: 058
     Dates: start: 20170614
  3. XOLAIR [Suspect]
     Active Substance: OMALIZUMAB
     Route: 058
     Dates: start: 20171206
  4. ADVAIR HFA [Concomitant]
     Active Substance: FLUTICASONE PROPIONATE\SALMETEROL XINAFOATE
     Indication: PRODUCT USED FOR UNKNOWN INDICATION
     Dosage: UNK
     Route: 065
  5. LYRICA [Concomitant]
     Active Substance: PREGABALIN
     Indication: COMPLEX REGIONAL PAIN SYNDROME
     Dosage: 1 DF, QID
     Route: 065
  6. PERCOCET [Concomitant]
     Active Substance: ACETAMINOPHEN\OXYCODONE HYDROCHLORIDE
     Indication: MOBILITY DECREASED
     Dosage: 6 TIMES A DAY
     Route: 065
  7. XOLAIR [Suspect]
     Active Substance: OMALIZUMAB
     Route: 058
     Dates: start: 20140109
  8. XOLAIR [Suspect]
     Active Substance: OMALIZUMAB
     Route: 058
     Dates: start: 20140206
  9. XOLAIR [Suspect]
     Active Substance: OMALIZUMAB
     Route: 058
  10. XOLAIR [Suspect]
     Active Substance: OMALIZUMAB
     Route: 058
     Dates: start: 20160714
  11. SINGULAIR [Concomitant]
     Active Substance: MONTELUKAST SODIUM
     Indication: PRODUCT USED FOR UNKNOWN INDICATION
     Dosage: UNK
     Route: 065
  12. VENTOLIN [Concomitant]
     Active Substance: ALBUTEROL SULFATE
     Indication: PRODUCT USED FOR UNKNOWN INDICATION
     Dosage: UNK
     Route: 055
  13. SALBUTAMOL [Concomitant]
     Active Substance: ALBUTEROL
     Indication: PRODUCT USED FOR UNKNOWN INDICATION
     Dosage: UNK
     Route: 065
  14. XOLAIR [Suspect]
     Active Substance: OMALIZUMAB
     Indication: ASTHMA
     Route: 058
     Dates: start: 20080612
  15. XOLAIR [Suspect]
     Active Substance: OMALIZUMAB
     Route: 058
     Dates: start: 20140206
  16. XOLAIR [Suspect]
     Active Substance: OMALIZUMAB
     Route: 058
     Dates: start: 20171004
  17. XOLAIR [Suspect]
     Active Substance: OMALIZUMAB
     Route: 058
     Dates: start: 20180802
  18. SODIUM AMYTAL [Concomitant]
     Active Substance: AMOBARBITAL SODIUM
     Indication: PRODUCT USED FOR UNKNOWN INDICATION
     Dosage: BOLUS
     Route: 002
  19. XOLAIR [Suspect]
     Active Substance: OMALIZUMAB
     Route: 058
     Dates: start: 20170712
  20. XOLAIR [Suspect]
     Active Substance: OMALIZUMAB
     Route: 058
     Dates: start: 20170906
  21. XOLAIR [Suspect]
     Active Substance: OMALIZUMAB
     Route: 058
     Dates: start: 20171101
  22. KETAMINE [Concomitant]
     Active Substance: KETAMINE
     Indication: PRODUCT USED FOR UNKNOWN INDICATION
     Route: 065
     Dates: start: 20080402
  23. XOLAIR [Suspect]
     Active Substance: OMALIZUMAB
     Route: 058
     Dates: start: 20150618
  24. XOLAIR [Suspect]
     Active Substance: OMALIZUMAB
     Dosage: UNK
     Route: 058
     Dates: start: 2016
  25. XOLAIR [Suspect]
     Active Substance: OMALIZUMAB
     Route: 058
     Dates: start: 20170127
  26. XOLAIR [Suspect]
     Active Substance: OMALIZUMAB
     Route: 058
     Dates: start: 20170809
  27. XOLAIR [Suspect]
     Active Substance: OMALIZUMAB
     Route: 058
     Dates: start: 20180628
  28. ALVESCO [Concomitant]
     Active Substance: CICLESONIDE
     Indication: PRODUCT USED FOR UNKNOWN INDICATION
     Dosage: 2 PUFFS
     Route: 065
  29. LIDOCAINE. [Concomitant]
     Active Substance: LIDOCAINE
     Indication: COMPLEX REGIONAL PAIN SYNDROME
     Dosage: PUMP
     Route: 041
     Dates: start: 20080402
  30. PREDNISOLONE. [Concomitant]
     Active Substance: PREDNISOLONE
     Dosage: FOR 1 MONTH
     Route: 065
  31. XOLAIR [Suspect]
     Active Substance: OMALIZUMAB
     Route: 058
  32. XOLAIR [Suspect]
     Active Substance: OMALIZUMAB
     Route: 058
     Dates: start: 20160901
  33. XOLAIR [Suspect]
     Active Substance: OMALIZUMAB
     Route: 058
     Dates: start: 20170511
  34. VENTOLIN [Concomitant]
     Active Substance: ALBUTEROL SULFATE
     Dosage: UNK UNK, QID
     Route: 065
  35. MANNITOL. [Concomitant]
     Active Substance: MANNITOL
     Indication: PRODUCT USED FOR UNKNOWN INDICATION
     Route: 041
  36. MANNITOL. [Concomitant]
     Active Substance: MANNITOL
     Dosage: UNK
     Route: 041
  37. PULMICORT TURBUHALER [Concomitant]
     Active Substance: BUDESONIDE
     Indication: PRODUCT USED FOR UNKNOWN INDICATION
     Dosage: UNK
     Route: 065
  38. PERCOCET [Concomitant]
     Active Substance: ACETAMINOPHEN\OXYCODONE HYDROCHLORIDE
     Indication: PAIN
     Dosage: Q6H
     Route: 065
  39. ATROVENT [Concomitant]
     Active Substance: IPRATROPIUM BROMIDE
     Indication: PRODUCT USED FOR UNKNOWN INDICATION
     Dosage: UNK UNK, QID
     Route: 065
  40. XOLAIR [Suspect]
     Active Substance: OMALIZUMAB
     Route: 058
  41. XOLAIR [Suspect]
     Active Substance: OMALIZUMAB
     Route: 058
  42. XOLAIR [Suspect]
     Active Substance: OMALIZUMAB
     Route: 058
     Dates: start: 20161118
  43. XOLAIR [Suspect]
     Active Substance: OMALIZUMAB
     Route: 058
     Dates: start: 20170127
  44. ATROPINE. [Concomitant]
     Active Substance: ATROPINE
     Indication: PRODUCT USED FOR UNKNOWN INDICATION
     Dosage: UNK
     Route: 065
  45. FLONASE [Concomitant]
     Active Substance: FLUTICASONE PROPIONATE
     Indication: PRODUCT USED FOR UNKNOWN INDICATION
     Dosage: UNK
     Route: 065
  46. SALBUTAMOL [Concomitant]
     Active Substance: ALBUTEROL
     Route: 065
  47. XOLAIR [Suspect]
     Active Substance: OMALIZUMAB
     Route: 058
     Dates: start: 20100222
  48. XOLAIR [Suspect]
     Active Substance: OMALIZUMAB
     Route: 058
     Dates: start: 20150806
  49. MANNITOL. [Concomitant]
     Active Substance: MANNITOL
     Dosage: UNK
     Route: 065
  50. CLONIDINE. [Concomitant]
     Active Substance: CLONIDINE
     Indication: PAIN
     Dosage: 1 DF, BID
     Route: 065

REACTIONS (56)
  - Pneumonia [Unknown]
  - Mobility decreased [Unknown]
  - Sinus disorder [Unknown]
  - Nasal discharge discolouration [Unknown]
  - Vomiting [Recovering/Resolving]
  - Lower respiratory tract infection [Recovering/Resolving]
  - Dermatitis contact [Unknown]
  - Alopecia [Unknown]
  - Neuralgia [Unknown]
  - Psoriasis [Unknown]
  - Rash erythematous [Not Recovered/Not Resolved]
  - Toothache [Unknown]
  - Blood pressure increased [Unknown]
  - Abdominal distension [Unknown]
  - Lung disorder [Unknown]
  - Influenza like illness [Unknown]
  - Stress [Unknown]
  - Smoke sensitivity [Unknown]
  - Total lung capacity decreased [Unknown]
  - Weight decreased [Unknown]
  - Recurrent cancer [Unknown]
  - Concomitant disease aggravated [Not Recovered/Not Resolved]
  - Dyspnoea [Not Recovered/Not Resolved]
  - Bronchitis [Unknown]
  - Fall [Unknown]
  - Influenza [Unknown]
  - Ageusia [Unknown]
  - Rash [Unknown]
  - Nasopharyngitis [Unknown]
  - Pharyngitis [Unknown]
  - Gastrointestinal disorder [Unknown]
  - Nasal congestion [Unknown]
  - Asthma [Unknown]
  - Sinusitis [Not Recovered/Not Resolved]
  - Cough [Recovering/Resolving]
  - Diarrhoea [Not Recovered/Not Resolved]
  - Headache [Unknown]
  - Anosmia [Unknown]
  - Hypokinesia [Unknown]
  - Rash pruritic [Unknown]
  - Weight increased [Unknown]
  - Complex regional pain syndrome [Not Recovered/Not Resolved]
  - Hypersensitivity [Unknown]
  - Allergy to arthropod sting [Unknown]
  - Pain [Unknown]
  - Paraesthesia [Unknown]
  - Hypoventilation [Recovering/Resolving]
  - Constipation [Unknown]
  - Eczema [Recovering/Resolving]
  - Sleep disorder [Unknown]
  - Pain in extremity [Unknown]
  - Malaise [Recovering/Resolving]
  - General physical health deterioration [Unknown]
  - Speech disorder [Unknown]
  - Emotional disorder [Unknown]
  - Insomnia [Unknown]

NARRATIVE: CASE EVENT DATE: 20110429
